FAERS Safety Report 19032490 (Version 4)
Quarter: 2021Q4

REPORT INFORMATION
  Report Type: Spontaneous
  Country: JP (occurrence: JP)
  Receive Date: 20210319
  Receipt Date: 20211001
  Transmission Date: 20220304
  Serious: Yes (Death, Hospitalization, Other)
  Sender: FDA-Public Use
  Company Number: JP-BRISTOL-MYERS SQUIBB COMPANY-BMS-2021-025663

PATIENT
  Age: 55 Year
  Sex: Male
  Weight: 50 kg

DRUGS (2)
  1. OPDIVO [Suspect]
     Active Substance: NIVOLUMAB
     Indication: Oesophageal carcinoma
     Dosage: 240 MILLIGRAM, Q2WK
     Route: 041
     Dates: start: 20210210
  2. AMINO ACIDS\DEXTROSE\ELECTROLYTES NOS\SOYBEAN OIL\VITAMINS [Concomitant]
     Active Substance: AMINO ACIDS\DEXTROSE\ELECTROLYTES NOS\SOYBEAN OIL\VITAMINS
     Indication: Product used for unknown indication
     Dosage: 2 UNK, Q4H, ROUTE OF ADMINISTRATION:GASTRIC FISTULA
     Route: 050
     Dates: start: 20201009, end: 20210302

REACTIONS (1)
  - Fulminant type 1 diabetes mellitus [Fatal]

NARRATIVE: CASE EVENT DATE: 20210303
